FAERS Safety Report 9819397 (Version 3)
Quarter: 2014Q1

REPORT INFORMATION
  Report Type: Report from Study
  Country: BR (occurrence: BR)
  Receive Date: 20140115
  Receipt Date: 20140224
  Transmission Date: 20141002
  Serious: Yes (Other)
  Sender: FDA-Public Use
  Company Number: PHHY2013BR136361

PATIENT
  Sex: Male
  Weight: 68 kg

DRUGS (4)
  1. FORASEQ [Suspect]
     Indication: BRONCHITIS
     Dosage: 120 DAYS AGO
  2. ATROVENT [Suspect]
     Dosage: 0.250 MG, UNK
  3. AIRES [Concomitant]
     Dosage: 600 MG, 120 DAYS AGO
  4. DUOMAS [Concomitant]
     Dosage: 120 DAYS AGO

REACTIONS (9)
  - Asthma [Recovered/Resolved]
  - Balance disorder [Recovered/Resolved]
  - Dyspnoea [Recovered/Resolved]
  - Fatigue [Recovered/Resolved]
  - Asthenia [Recovered/Resolved]
  - Nervousness [Recovered/Resolved]
  - Malaise [Recovered/Resolved]
  - Dizziness [Recovered/Resolved]
  - Dysphonia [Not Recovered/Not Resolved]
